FAERS Safety Report 9403572 (Version 1)
Quarter: 2013Q3

REPORT INFORMATION
  Report Type: Spontaneous
  Country: CN (occurrence: CN)
  Receive Date: 20130717
  Receipt Date: 20130717
  Transmission Date: 20140515
  Serious: Yes (Disabling)
  Sender: FDA-Public Use
  Company Number: CN-009507513-1307CHN006724

PATIENT
  Age: 99 Year
  Sex: Female

DRUGS (2)
  1. FOSAMAX [Suspect]
     Indication: OSTEOPOROSIS
     Dosage: 1 DF, QW
     Route: 048
     Dates: start: 2003
  2. FOSAMAX [Suspect]
     Dosage: 1 DF, Q3W
     Route: 048
     Dates: start: 2012, end: 201306

REACTIONS (4)
  - Odynophagia [Recovering/Resolving]
  - Fracture [Not Recovered/Not Resolved]
  - Drug administration error [Unknown]
  - Inappropriate schedule of drug administration [Unknown]
